FAERS Safety Report 18123439 (Version 1)
Quarter: 2020Q3

REPORT INFORMATION
  Report Type: Spontaneous
  Country: NL (occurrence: DK)
  Receive Date: 20200807
  Receipt Date: 20200807
  Transmission Date: 20201103
  Serious: Yes (Other)
  Sender: FDA-Public Use
  Company Number: DK-FRESENIUS KABI-FK202007993

PATIENT
  Age: 58 Year
  Sex: Female

DRUGS (3)
  1. CARBOPLATIN (MANUFACTURER UNKNOWN) [Suspect]
     Active Substance: CARBOPLATIN
     Indication: LUNG NEOPLASM MALIGNANT
     Dosage: STRENGTH: 10 MG/ML.?DOSE: UNKNOWN?PHARMACEUTICAL DOSE FORM (FREE TEXT): 16
     Route: 065
     Dates: start: 20170602
  2. ETOPOSIDE (MANUFACTURER UNKNOWN) [Suspect]
     Active Substance: ETOPOSIDE
     Indication: LUNG NEOPLASM MALIGNANT
     Dosage: STRENGTH: 20 MG/ML?DOSE: UNKNOWN.?PHARMACEUTICAL DOSE FORM (FREE TEXT): 16
     Route: 065
     Dates: start: 20170602
  3. LETROZOLE. [Concomitant]
     Active Substance: LETROZOLE
     Indication: BREAST CANCER
     Dosage: STRENGTH: 2.5 MG?PHARMACEUTICAL DOSE FORM (FREE TEXT): 82
     Route: 048
     Dates: start: 20170622

REACTIONS (5)
  - Hypokinesia [Not Recovered/Not Resolved]
  - Neck pain [Unknown]
  - Muscle atrophy [Unknown]
  - Demyelinating polyneuropathy [Unknown]
  - Paraesthesia [Unknown]

NARRATIVE: CASE EVENT DATE: 20170616
